FAERS Safety Report 7151352-3 (Version None)
Quarter: 2010Q4

REPORT INFORMATION
  Report Type: 
  Country: None (occurrence: None)
  Receive Date: 20101210
  Receipt Date: 20101124
  Transmission Date: 20110411
  Serious: Yes (Death, Hospitalization)
  Sender: FDA-Public Use
  Company Number: NL-BAYER-201025352GPV

PATIENT
  Sex: Male

DRUGS (1)
  1. SORAFENIB [Suspect]
     Dosage: 400 MG, BID
     Route: 048
     Dates: start: 20100414

REACTIONS (3)
  - CONFUSIONAL STATE [None]
  - DISBACTERIOSIS [None]
  - WEIGHT DECREASED [None]
